FAERS Safety Report 6817530-5 (Version None)
Quarter: 2010Q3

REPORT INFORMATION
  Report Type: 
  Country: None (occurrence: None)
  Receive Date: 20100706
  Receipt Date: 20100705
  Transmission Date: 20110219
  Serious: Yes (Life-Threatening)
  Sender: FDA-Public Use
  Company Number: D0068180A

PATIENT
  Age: 66 Year
  Sex: Male

DRUGS (1)
  1. HYCAMTIN [Suspect]
     Route: 042
     Dates: start: 20100118, end: 20100118

REACTIONS (3)
  - CHILLS [None]
  - DYSPNOEA [None]
  - HYPERSENSITIVITY [None]
